FAERS Safety Report 7511408-X (Version None)
Quarter: 2011Q2

REPORT INFORMATION
  Report Type: 
  Country: None (occurrence: None)
  Receive Date: 20110531
  Receipt Date: 20110519
  Transmission Date: 20111010
  Serious: Yes (Other)
  Sender: FDA-Public Use
  Company Number: PHHY2010US67046

PATIENT
  Sex: Female

DRUGS (4)
  1. EXTAVIA [Suspect]
     Indication: MULTIPLE SCLEROSIS
     Dosage: 0.125 MG, QOD
     Route: 058
     Dates: start: 20100304
  2. ACETAMINOPHEN [Concomitant]
  3. EXTAVIA [Suspect]
     Dosage: UNK
     Route: 058
     Dates: start: 20110401
  4. AUGMENTIN [Concomitant]
     Dosage: 250 MG, BID

REACTIONS (10)
  - FATIGUE [None]
  - BRONCHITIS [None]
  - OROPHARYNGEAL PAIN [None]
  - EAR INFECTION [None]
  - INJECTION SITE ERYTHEMA [None]
  - DEPRESSION [None]
  - INJECTION SITE PAIN [None]
  - UPPER RESPIRATORY TRACT INFECTION [None]
  - INJECTION SITE RASH [None]
  - MALAISE [None]
